FAERS Safety Report 10402694 (Version 1)
Quarter: 2014Q3

REPORT INFORMATION
  Report Type: Spontaneous
  Country: US (occurrence: US)
  Receive Date: 20140822
  Receipt Date: 20140822
  Transmission Date: 20150326
  Serious: No
  Sender: FDA-Public Use
  Company Number: US-PFIZER INC-2014232650

PATIENT
  Age: 65 Year
  Sex: Female
  Weight: 87.08 kg

DRUGS (5)
  1. ROPINIROLE. [Concomitant]
     Active Substance: ROPINIROLE
     Dosage: 0.5 MG, 3X/DAY (BY TAKING TWO TABLET AT A TIME)
     Route: 048
  2. PROTONIX [Concomitant]
     Active Substance: PANTOPRAZOLE SODIUM
     Dosage: 40 MG, 2X/DAY
  3. DULOXETINE [Concomitant]
     Active Substance: DULOXETINE
     Dosage: 60 MG, 3X/DAY (BY TAKING TWO CAPSULE AT A TIME)
     Route: 048
  4. LYRICA [Suspect]
     Active Substance: PREGABALIN
     Indication: FIBROMYALGIA
     Dosage: 300 MG (BY TAKING TWO 150MG CAPSULE AT A TIME), 3X/DAY
     Route: 048
     Dates: start: 2014, end: 2014
  5. LYRICA [Suspect]
     Active Substance: PREGABALIN
     Dosage: 100 MG (BY TAKING TWO 50MG CAPSULE AT A TIME), 3X/DAY
     Route: 048
     Dates: start: 2014

REACTIONS (3)
  - Drug ineffective [Unknown]
  - Intentional product misuse [Unknown]
  - Pain [Unknown]

NARRATIVE: CASE EVENT DATE: 2014
